FAERS Safety Report 23833564 (Version 1)
Quarter: 2024Q2

REPORT INFORMATION
  Report Type: Spontaneous
  Country: JP (occurrence: JP)
  Receive Date: 20240508
  Receipt Date: 20240508
  Transmission Date: 20240715
  Serious: Yes (Death)
  Sender: FDA-Public Use
  Company Number: JP-002147023-NVSJ2024JP005339

PATIENT
  Age: 58 Year
  Sex: Male

DRUGS (1)
  1. ASCIMINIB [Suspect]
     Active Substance: ASCIMINIB
     Indication: Chronic myeloid leukaemia transformation
     Dosage: 40 MG, BID
     Route: 048
     Dates: start: 20220809

REACTIONS (3)
  - Death [Fatal]
  - Tumour marker increased [Unknown]
  - Therapy non-responder [Unknown]
